FAERS Safety Report 9485203 (Version 1)
Quarter: 2013Q3

REPORT INFORMATION
  Report Type: Spontaneous
  Country: US (occurrence: US)
  Receive Date: 20130828
  Receipt Date: 20130828
  Transmission Date: 20140515
  Serious: No
  Sender: FDA-Public Use
  Company Number: US-ABBOTT-13P-163-1110845-00

PATIENT
  Age: 46 Year
  Sex: Male
  Weight: 115.77 kg

DRUGS (3)
  1. ANDROGEL [Suspect]
     Indication: BLOOD TESTOSTERONE DECREASED
     Dosage: 2 PUMPS/DAY
     Dates: start: 201211, end: 2013
  2. ANDROGEL [Suspect]
     Dosage: 3 PUMPS
     Dates: start: 2013, end: 2013
  3. ANDROGEL [Suspect]
     Dosage: 4 PUMPS/DAY
     Dates: start: 2013

REACTIONS (6)
  - Application site pain [Unknown]
  - Abdominal pain [Not Recovered/Not Resolved]
  - Application site pruritus [Recovered/Resolved]
  - Diarrhoea [Not Recovered/Not Resolved]
  - Blood testosterone decreased [Unknown]
  - Application site paraesthesia [Unknown]
